FAERS Safety Report 7763610-X (Version None)
Quarter: 2011Q3

REPORT INFORMATION
  Report Type: 
  Country: None (occurrence: None)
  Receive Date: 20110921
  Receipt Date: 20110830
  Transmission Date: 20111222
  Serious: Yes (Death, Life-Threatening, Hospitalization)
  Sender: FDA-Public Use
  Company Number: PHHO2011AU14681

PATIENT
  Sex: Male
  Weight: 83 kg

DRUGS (6)
  1. GLEEVEC [Suspect]
     Indication: PULMONARY ARTERIAL HYPERTENSION
     Dosage: 200 MG, UNK
     Route: 048
     Dates: start: 20110610
  2. FUROSEMIDE [Concomitant]
     Indication: PULMONARY ARTERIAL HYPERTENSION
     Dosage: 80 MG, QD
  3. LEVOTHYROXINE SODIUM [Concomitant]
     Indication: HYPOTHYROIDISM
     Dosage: 80 MG, QD
  4. PRAVASTATIN [Concomitant]
     Indication: BLOOD CHOLESTEROL INCREASED
     Dosage: 20 MG, QD
  5. CLOPIDOGREL [Concomitant]
     Dosage: 75 MG, QD
  6. SILDENAFIL CITRATE [Concomitant]
     Indication: PULMONARY ARTERIAL HYPERTENSION
     Dosage: 25 MG, TID

REACTIONS (5)
  - URETHRAL HAEMORRHAGE [None]
  - RENAL FAILURE ACUTE [None]
  - INJURY [None]
  - SEPSIS [None]
  - DEATH [None]
